FAERS Safety Report 14033477 (Version 3)
Quarter: 2017Q4

REPORT INFORMATION
  Report Type: Spontaneous
  Country: IT (occurrence: IT)
  Receive Date: 20171003
  Receipt Date: 20171031
  Transmission Date: 20180321
  Serious: Yes (Other)
  Sender: FDA-Public Use
  Company Number: PHHY2017IT142673

PATIENT
  Age: 12 Month
  Sex: Female
  Weight: 10 kg

DRUGS (2)
  1. AMOXICILLIN. [Suspect]
     Active Substance: AMOXICILLIN
     Indication: RESPIRATORY TRACT INFECTION
  2. AMOXICILLIN. [Suspect]
     Active Substance: AMOXICILLIN
     Indication: BRONCHOSPASM
     Dosage: 2 DF, QD
     Route: 048
     Dates: start: 20170403, end: 20170409

REACTIONS (3)
  - Angioedema [Recovered/Resolved]
  - Hypersensitivity [Recovered/Resolved]
  - Urticaria [Recovered/Resolved]

NARRATIVE: CASE EVENT DATE: 20170410
